FAERS Safety Report 14106078 (Version 1)
Quarter: 2017Q4

REPORT INFORMATION
  Report Type: Spontaneous
  Country: US (occurrence: US)
  Receive Date: 20171018
  Receipt Date: 20171018
  Transmission Date: 20180321
  Serious: No
  Sender: FDA-Public Use
  Company Number: US-AMGEN-USASP2016151899

PATIENT
  Age: 73 Year
  Sex: Female

DRUGS (1)
  1. PROLIA [Suspect]
     Active Substance: DENOSUMAB
     Indication: BONE DISORDER
     Dosage: UNK UNK, Q6MO
     Route: 065

REACTIONS (7)
  - Adverse drug reaction [Unknown]
  - Hypoaesthesia [Unknown]
  - Eczema [Not Recovered/Not Resolved]
  - Arthralgia [Recovered/Resolved]
  - Paraesthesia [Unknown]
  - Memory impairment [Unknown]
  - Unevaluable event [Unknown]
